FAERS Safety Report 17757481 (Version 1)
Quarter: 2020Q2

REPORT INFORMATION
  Report Type: Report from Study
  Country: None (occurrence: US)
  Receive Date: 20200507
  Receipt Date: 20200507
  Transmission Date: 20200714
  Serious: Yes (Other)
  Sender: FDA-Public Use
  Company Number: US-ABBVIE-20K-163-3382830-00

PATIENT
  Sex: Female

DRUGS (2)
  1. HUMIRA [Suspect]
     Active Substance: ADALIMUMAB
     Indication: CROHN^S DISEASE
     Route: 058
  2. HUMIRA [Suspect]
     Active Substance: ADALIMUMAB
     Indication: CROHN^S DISEASE
     Dosage: CITRATE FREE
     Route: 058

REACTIONS (10)
  - Hypoaesthesia [Not Recovered/Not Resolved]
  - Injection site urticaria [Recovering/Resolving]
  - Conjunctivitis [Unknown]
  - Rhabdomyolysis [Recovered/Resolved]
  - Visual impairment [Unknown]
  - Injection site bruising [Recovering/Resolving]
  - Crohn^s disease [Recovered/Resolved]
  - Headache [Unknown]
  - Injection site pain [Recovered/Resolved]
  - Viral infection [Unknown]
